FAERS Safety Report 10038021 (Version 2)
Quarter: 2014Q3

REPORT INFORMATION
  Report Type: Spontaneous
  Country: JP (occurrence: None)
  Receive Date: 20140321
  Receipt Date: 20140801
  Transmission Date: 20150326
  Serious: Yes (Other)
  Sender: FDA-Public Use
  Company Number: 2239910

PATIENT
  Age: 62 Year
  Sex: Female
  Weight: 59 kg

DRUGS (5)
  1. (ADRENALIN /00003901/) [Concomitant]
  2. (SODIUM BICARBONATE) [Concomitant]
  3. (LIDOCAINE) [Concomitant]
  4. (DEXMEDETOMIDINE HYDROCHLORIDE) [Suspect]
     Active Substance: DEXMEDETOMIDINE HYDROCHLORIDE
     Indication: SEDATION
     Dosage: 132 UG MICROGRAM(S), UNKNOWN, INTRAVENOUS (NOT OTHERWISE SPECIFIED)
     Route: 042
     Dates: start: 20140304, end: 20140304
  5. (OTHER LOCAL ANESTHETICS) [Concomitant]

REACTIONS (3)
  - Pain in extremity [None]
  - Loss of consciousness [None]
  - Bradycardia [None]

NARRATIVE: CASE EVENT DATE: 20140304
